FAERS Safety Report 8872829 (Version 1)
Quarter: 2012Q4

REPORT INFORMATION
  Report Type: 
  Country: US (occurrence: US)
  Receive Date: 20121030
  Receipt Date: 20121030
  Transmission Date: 20130627
  Serious: No
  Sender: FDA-Public Use
  Company Number: US-009507513-1209USA011129

PATIENT
  Sex: Female
  Weight: 63.95 kg

DRUGS (3)
  1. VICTRELIS [Suspect]
     Indication: HEPATITIS C
  2. PEGINTRON [Suspect]
     Indication: HEPATITIS C
     Dosage: 0.5 dosage form
  3. RIBAVIRIN [Suspect]
     Indication: HEPATITIS C

REACTIONS (1)
  - Anaemia [Unknown]
